FAERS Safety Report 22005319 (Version 1)
Quarter: 2023Q1

REPORT INFORMATION
  Report Type: Spontaneous
  Country: AU (occurrence: AU)
  Receive Date: 20230217
  Receipt Date: 20230217
  Transmission Date: 20230418
  Serious: Yes (Other)
  Sender: FDA-Public Use
  Company Number: AU-Atnahs Limited-ATNAHS20230200470

PATIENT
  Age: 44 Year
  Sex: Female

DRUGS (2)
  1. DIAZEPAM [Suspect]
     Active Substance: DIAZEPAM
     Indication: Product used for unknown indication
  2. ALCOHOL [Suspect]
     Active Substance: ALCOHOL
     Indication: Product used for unknown indication

REACTIONS (2)
  - Suicidal ideation [Unknown]
  - Toxicity to various agents [Recovered/Resolved]
